FAERS Safety Report 14448836 (Version 2)
Quarter: 2018Q1

REPORT INFORMATION
  Report Type: Spontaneous
  Country: ES (occurrence: ES)
  Receive Date: 20180126
  Receipt Date: 20180215
  Transmission Date: 20180509
  Serious: Yes (Hospitalization)
  Sender: FDA-Public Use
  Company Number: ES-TEVA-2018-ES-849762

PATIENT
  Age: 78 Year
  Sex: Male

DRUGS (4)
  1. OXYGEN. [Concomitant]
     Active Substance: OXYGEN
     Route: 065
  2. LEFLUNOMIDE. [Suspect]
     Active Substance: LEFLUNOMIDE
     Indication: RHEUMATOID ARTHRITIS
     Route: 065
  3. CEFDITOREN [Suspect]
     Active Substance: CEFDITOREN
     Indication: ESCHERICHIA INFECTION
     Dosage: 400MG/12H
     Route: 048
  4. CEFTAZIDIME. [Suspect]
     Active Substance: CEFTAZIDIME
     Dosage: 2 G PER 8 HOURS
     Route: 042

REACTIONS (2)
  - Chronic obstructive pulmonary disease [Recovering/Resolving]
  - Bacterial infection [Recovering/Resolving]
